FAERS Safety Report 13359939 (Version 2)
Quarter: 2017Q2

REPORT INFORMATION
  Report Type: Report from Study
  Country: JP (occurrence: JP)
  Receive Date: 20170322
  Receipt Date: 20170411
  Transmission Date: 20170830
  Serious: Yes (Other)
  Sender: FDA-Public Use
  Company Number: JP-PFIZER INC-2017114978

PATIENT
  Sex: Male

DRUGS (1)
  1. ESTRAMUSTINE SODIUM PHOSPHATE [Suspect]
     Active Substance: ESTRAMUSTINE PHOSPHATE SODIUM
     Indication: HORMONE-REFRACTORY PROSTATE CANCER
     Dosage: 280 MG, DAILY

REACTIONS (1)
  - Liver disorder [Unknown]
